FAERS Safety Report 26076450 (Version 1)
Quarter: 2025Q4

REPORT INFORMATION
  Report Type: Spontaneous
  Country: CA (occurrence: CA)
  Receive Date: 20251121
  Receipt Date: 20251121
  Transmission Date: 20260117
  Serious: Yes (Hospitalization, Other)
  Sender: PFIZER
  Company Number: CA-PFIZER INC-202500228131

PATIENT
  Age: 36 Year
  Sex: Female
  Weight: 86.6 kg

DRUGS (3)
  1. IXIFI [Suspect]
     Active Substance: INFLIXIMAB-QBTX
     Indication: Crohn^s disease
     Dosage: EVERY 6 WEEK(RAPID)
     Route: 042
     Dates: start: 20250823
  2. IXIFI [Suspect]
     Active Substance: INFLIXIMAB-QBTX
     Dosage: EVERY 6 WEEKS
     Route: 042
     Dates: start: 20251004
  3. IXIFI [Suspect]
     Active Substance: INFLIXIMAB-QBTX
     Dosage: EVERY 6 WEEKS
     Route: 042
     Dates: start: 20251115

REACTIONS (2)
  - Transfusion [Recovering/Resolving]
  - Maternal exposure during pregnancy [Unknown]

NARRATIVE: CASE EVENT DATE: 20250101
